FAERS Safety Report 24122708 (Version 1)
Quarter: 2024Q3

REPORT INFORMATION
  Report Type: Spontaneous
  Country: JP (occurrence: None)
  Receive Date: 20240723
  Receipt Date: 20240723
  Transmission Date: 20241017
  Serious: Yes (Death, Hospitalization)
  Sender: HARMAN FINOCHEM
  Company Number: JP-Harman-000063

PATIENT
  Age: 45 Year
  Sex: Female

DRUGS (1)
  1. METFORMIN [Suspect]
     Active Substance: METFORMIN HYDROCHLORIDE
     Indication: Diabetes mellitus
     Dosage: INGESTED APPROXIMATELY 71 G

REACTIONS (8)
  - Lactic acidosis [Fatal]
  - Distributive shock [Fatal]
  - Seizure [Fatal]
  - Cardiac arrest [Fatal]
  - Toxicity to various agents [Fatal]
  - Circulatory collapse [Fatal]
  - Hypoxic-ischaemic encephalopathy [Fatal]
  - Overdose [Fatal]
